FAERS Safety Report 16564984 (Version 1)
Quarter: 2019Q3

REPORT INFORMATION
  Report Type: Spontaneous
  Country: US (occurrence: US)
  Receive Date: 20190711
  Receipt Date: 20190711
  Transmission Date: 20191004
  Serious: Yes (Death)
  Sender: FDA-Public Use
  Company Number: None

PATIENT
  Age: 60 Year
  Sex: Male

DRUGS (6)
  1. AMLODIPINE, ASPIRIN LOW [Concomitant]
  2. LOSARTAN POT, METOPROL [Concomitant]
  3. CLOPIDOGREL, LEVEMIR [Concomitant]
  4. SUTENT [Suspect]
     Active Substance: SUNITINIB MALATE
     Indication: ANAEMIA
     Dosage: ?          OTHER FREQUENCY:DAILY FOR 14 DAYS;?
     Route: 048
     Dates: start: 20180822, end: 20190708
  5. ZOLPIDEM [Concomitant]
     Active Substance: ZOLPIDEM TARTRATE
  6. NOVOLIN, PLAVIX [Concomitant]

REACTIONS (1)
  - Death [None]

NARRATIVE: CASE EVENT DATE: 20190708
